FAERS Safety Report 7039609-8 (Version None)
Quarter: 2010Q4

REPORT INFORMATION
  Report Type: 
  Country: None (occurrence: None)
  Receive Date: 20101012
  Receipt Date: 20101005
  Transmission Date: 20110411
  Serious: Yes (Other)
  Sender: FDA-Public Use
  Company Number: A0877263A

PATIENT
  Age: 57 Year
  Sex: Male

DRUGS (4)
  1. AVANDIA [Suspect]
     Dosage: 8MG PER DAY
     Route: 048
     Dates: start: 20000101
  2. DIOVAN [Concomitant]
  3. GLUCOVANCE [Concomitant]
  4. SIMVASTATIN [Concomitant]

REACTIONS (8)
  - BORDERLINE GLAUCOMA [None]
  - CATARACT NUCLEAR [None]
  - MACULAR DEGENERATION [None]
  - MACULAR OEDEMA [None]
  - OPTIC ATROPHY [None]
  - RETINAL DISORDER [None]
  - RETINAL PIGMENTATION [None]
  - VISUAL ACUITY REDUCED [None]
